FAERS Safety Report 8539407-X (Version None)
Quarter: 2012Q3

REPORT INFORMATION
  Report Type: 
  Country: None (occurrence: None)
  Receive Date: 20120726
  Receipt Date: 20120720
  Transmission Date: 20120928
  Serious: Yes (Hospitalization)
  Sender: FDA-Public Use
  Company Number: JP-009507513-1207JPN008150

PATIENT

DRUGS (4)
  1. VOLTAREN [Concomitant]
     Indication: PROPHYLAXIS
     Dosage: 25MG AS NEEDED
     Route: 054
     Dates: start: 20120525
  2. PEG-INTRON [Suspect]
     Indication: HEPATITIS C
     Dosage: 1.5MCG/KG/WEEK
     Route: 058
     Dates: start: 20120525
  3. TELAVIC [Suspect]
     Indication: HEPATITIS C
     Route: 048
     Dates: start: 20120525
  4. REBETOL [Suspect]
     Indication: HEPATITIS C
     Route: 048
     Dates: start: 20120525

REACTIONS (2)
  - HYPERURICAEMIA [None]
  - ANAEMIA [None]
